FAERS Safety Report 7735397-8 (Version None)
Quarter: 2011Q3

REPORT INFORMATION
  Report Type: 
  Country: None (occurrence: None)
  Receive Date: 20110907
  Receipt Date: 20110829
  Transmission Date: 20111222
  Serious: Yes (Other)
  Sender: FDA-Public Use
  Company Number: US-PFIZER INC-2011205568

PATIENT
  Sex: Female
  Weight: 74.83 kg

DRUGS (10)
  1. KEFLEX [Suspect]
     Indication: URINARY TRACT INFECTION
     Dosage: UNK
     Dates: start: 20110819
  2. DETROL LA [Suspect]
     Indication: URINARY TRACT INFECTION
     Dosage: UNK
  3. WARFARIN [Concomitant]
     Dosage: 2 MG, FOUR TIMES A WEEK
  4. CELEBREX [Concomitant]
     Indication: RHEUMATOID ARTHRITIS
     Dosage: 200 MG, 1X/DAY
  5. CELEBREX [Concomitant]
     Indication: OSTEOARTHRITIS
  6. CRESTOR [Concomitant]
     Indication: BLOOD CHOLESTEROL INCREASED
     Dosage: 10 MG, UNK
  7. WARFARIN [Concomitant]
     Indication: PULMONARY EMBOLISM
     Dosage: 4 MG, THREE TIMES A WEEK
  8. OMEPRAZOLE [Concomitant]
     Indication: DYSPEPSIA
     Dosage: 40 MG, 1X/DAY
  9. AMLODIPINE BESYLATE AND BENAZEPRIL HCL [Concomitant]
     Indication: HYPERTENSION
     Dosage: 5/10 MG
  10. LEVOTHYROXINE [Concomitant]
     Indication: THYROID DISORDER
     Dosage: 50 UG, UNK

REACTIONS (2)
  - URINARY TRACT INFECTION [None]
  - DRUG INEFFECTIVE FOR UNAPPROVED INDICATION [None]
